FAERS Safety Report 7430187-8 (Version None)
Quarter: 2011Q2

REPORT INFORMATION
  Report Type: 
  Country: None (occurrence: None)
  Receive Date: 20110421
  Receipt Date: 20100323
  Transmission Date: 20111010
  Serious: Yes (Hospitalization)
  Sender: FDA-Public Use
  Company Number: US-ASTRAZENECA-2010SE10122

PATIENT
  Sex: Female

DRUGS (3)
  1. TOPROL-XL [Suspect]
     Route: 048
     Dates: start: 19950101
  2. TOPROL-XL [Suspect]
     Route: 048
  3. TOPROL-XL [Suspect]
     Route: 048

REACTIONS (2)
  - HEART RATE INCREASED [None]
  - PALPITATIONS [None]
